FAERS Safety Report 9814445 (Version 1)
Quarter: 2014Q1

REPORT INFORMATION
  Report Type: Spontaneous
  Country: US (occurrence: US)
  Receive Date: 20140113
  Receipt Date: 20140113
  Transmission Date: 20141002
  Serious: Yes (Other)
  Sender: FDA-Public Use
  Company Number: PHEH2014US000867

PATIENT
  Sex: Male

DRUGS (2)
  1. EXFORGE [Suspect]
     Dosage: UNK UKN, UNK
  2. EXFORGE [Suspect]
     Dosage: UNK UKN, UNK

REACTIONS (3)
  - Aortic aneurysm [Unknown]
  - Blood pressure increased [Unknown]
  - Fear [Unknown]
